FAERS Safety Report 9042403 (Version 1)
Quarter: 2013Q1

REPORT INFORMATION
  Report Type: Spontaneous
  Country: US (occurrence: US)
  Receive Date: 20130129
  Receipt Date: 20130129
  Transmission Date: 20140127
  Serious: Yes (Other)
  Sender: FDA-Public Use
  Company Number: US-ABBOTT-12P-163-0908549-00

PATIENT
  Sex: Female
  Weight: 68.55 kg

DRUGS (3)
  1. HUMIRA 40 MG/ 0.8 ML PRE-FILLED SYRINGE [Suspect]
     Indication: PSORIASIS
  2. STELARA [Suspect]
     Indication: PSORIASIS
     Route: 058
  3. ENBREL [Suspect]
     Indication: PSORIASIS
     Dates: start: 200908

REACTIONS (1)
  - Staphylococcal infection [Recovered/Resolved]
